FAERS Safety Report 9715258 (Version 1)
Quarter: 2013Q4

REPORT INFORMATION
  Report Type: Spontaneous
  Country: US (occurrence: US)
  Receive Date: 20131126
  Receipt Date: 20131126
  Transmission Date: 20140711
  Serious: Yes (Death)
  Sender: FDA-Public Use
  Company Number: US-INDICUS PHARMA-000140

PATIENT
  Age: 42 Year
  Sex: Female

DRUGS (5)
  1. METFORMIN HYDROCHLORIDE [Suspect]
     Route: 048
  2. ACETAMINOPHEN W/HYDROCODONE [Suspect]
     Route: 048
  3. LORAZEPAM [Suspect]
     Route: 048
  4. QUETIAPINE [Suspect]
     Route: 048
  5. DULOXETINE [Suspect]
     Route: 048

REACTIONS (3)
  - Exposure via ingestion [Fatal]
  - Completed suicide [Fatal]
  - Cardio-respiratory arrest [Fatal]
